FAERS Safety Report 10595276 (Version 1)
Quarter: 2014Q4

REPORT INFORMATION
  Report Type: Spontaneous
  Country: US (occurrence: None)
  Receive Date: 20141118
  Receipt Date: 20141118
  Transmission Date: 20150529
  Serious: Yes (Hospitalization)
  Sender: FDA-Public Use
  Company Number: TH-2014-00125

PATIENT
  Age: 49 Year
  Sex: Male
  Weight: 98 kg

DRUGS (9)
  1. PHENTERMINE [Concomitant]
     Active Substance: PHENTERMINE
  2. IBUPROFEN. [Concomitant]
     Active Substance: IBUPROFEN
  3. EGRIFTA [Suspect]
     Active Substance: TESAMORELIN
     Indication: LIPODYSTROPHY ACQUIRED
     Route: 058
     Dates: start: 20140101, end: 20140102
  4. METFORMIN [Concomitant]
     Active Substance: METFORMIN HYDROCHLORIDE
  5. ANDROGEL [Concomitant]
     Active Substance: TESTOSTERONE
  6. TOPAMAX [Concomitant]
     Active Substance: TOPIRAMATE
  7. EGRIFTA [Suspect]
     Active Substance: TESAMORELIN
     Indication: HIV INFECTION
     Route: 058
     Dates: start: 20140101, end: 20140102
  8. RALTEGRAVIR [Concomitant]
     Active Substance: RALTEGRAVIR
  9. TRUVADA (EMTRICITABINE, TENOFOVIR DISOPROXIL) [Concomitant]

REACTIONS (3)
  - Fall [None]
  - Drug ineffective [None]
  - Skin ulcer [None]

NARRATIVE: CASE EVENT DATE: 20140625
